FAERS Safety Report 15705754 (Version 1)
Quarter: 2018Q4

REPORT INFORMATION
  Report Type: Spontaneous
  Country: JP (occurrence: JP)
  Receive Date: 20181210
  Receipt Date: 20181210
  Transmission Date: 20190205
  Serious: Yes (Hospitalization)
  Sender: FDA-Public Use
  Company Number: JP-ASTRAZENECA-2018SF49414

PATIENT
  Age: 38 Year
  Sex: Female

DRUGS (4)
  1. INVEGA [Concomitant]
     Active Substance: PALIPERIDONE
  2. ZETIA [Concomitant]
     Active Substance: EZETIMIBE
     Route: 048
  3. BIPRESSO (QUETIAPINE FUMARATE) [Suspect]
     Active Substance: QUETIAPINE FUMARATE
     Indication: BIPOLAR DISORDER
     Route: 048
     Dates: start: 20181025, end: 20181027
  4. ROZEREM [Concomitant]
     Active Substance: RAMELTEON

REACTIONS (1)
  - Drug eruption [Not Recovered/Not Resolved]

NARRATIVE: CASE EVENT DATE: 20181028
